FAERS Safety Report 15782592 (Version 1)
Quarter: 2019Q1

REPORT INFORMATION
  Report Type: Spontaneous
  Country: US (occurrence: US)
  Receive Date: 20190102
  Receipt Date: 20190102
  Transmission Date: 20190417
  Serious: Yes (Hospitalization)
  Sender: FDA-Public Use
  Company Number: US-PFIZER INC-2018532139

PATIENT
  Age: 75 Year
  Sex: Female
  Weight: 69.85 kg

DRUGS (5)
  1. METFORMIN [Concomitant]
     Active Substance: METFORMIN HYDROCHLORIDE
     Indication: DIABETES MELLITUS
     Dosage: 75 MG, 2X/DAY
     Route: 048
  2. ARMOUR THYROID [Concomitant]
     Active Substance: THYROID, PORCINE
     Indication: HYPOTHYROIDISM
     Dosage: 60 MG A DAY ON THE WEEKENDS, AND 90 MG DURING THE WEEK
     Route: 048
     Dates: start: 2003
  3. LATANOPROST. [Suspect]
     Active Substance: LATANOPROST
     Indication: GLAUCOMA
     Dosage: 2 GTT, 1X/DAY (AT BEDTIME )
     Dates: start: 20181214
  4. TRULICITY [Concomitant]
     Active Substance: DULAGLUTIDE
     Indication: DIABETES MELLITUS
     Dosage: 1.5 MG, WEEKLY
     Route: 058
     Dates: start: 2017
  5. LOSARTAN. [Concomitant]
     Active Substance: LOSARTAN
     Indication: BLOOD PRESSURE ABNORMAL
     Dosage: 50 MG, 1X/DAY
     Route: 048
     Dates: start: 2015

REACTIONS (4)
  - Headache [Unknown]
  - Gait disturbance [Unknown]
  - Vertigo [Not Recovered/Not Resolved]
  - Acne [Unknown]

NARRATIVE: CASE EVENT DATE: 20181218
